FAERS Safety Report 25438182 (Version 1)
Quarter: 2025Q2

REPORT INFORMATION
  Report Type: Spontaneous
  Country: CN (occurrence: CN)
  Receive Date: 20250616
  Receipt Date: 20250616
  Transmission Date: 20250716
  Serious: Yes (Hospitalization)
  Sender: ROCHE
  Company Number: US-ROCHE-10000307233

PATIENT
  Age: 62 Year
  Sex: Female

DRUGS (2)
  1. ALECTINIB [Suspect]
     Active Substance: ALECTINIB
     Indication: Non-small cell lung cancer
     Route: 065
  2. ALECTINIB [Suspect]
     Active Substance: ALECTINIB
     Route: 065

REACTIONS (6)
  - Vomiting [Unknown]
  - Fatigue [Unknown]
  - Myalgia [Unknown]
  - Hepatic function abnormal [Unknown]
  - Alanine aminotransferase increased [Unknown]
  - Aspartate aminotransferase increased [Unknown]
